FAERS Safety Report 20595674 (Version 2)
Quarter: 2022Q2

REPORT INFORMATION
  Report Type: Spontaneous
  Country: CO (occurrence: CO)
  Receive Date: 20220315
  Receipt Date: 20220427
  Transmission Date: 20220721
  Serious: No
  Sender: FDA-Public Use
  Company Number: CO-PFIZER INC-202200284172

PATIENT
  Age: 9 Year
  Sex: Female

DRUGS (1)
  1. GENOTROPIN [Suspect]
     Active Substance: SOMATROPIN
     Dosage: 1 MG, DAILY
     Route: 058
     Dates: start: 20200810

REACTIONS (3)
  - Incorrect dose administered by device [Unknown]
  - Device leakage [Unknown]
  - Device failure [Unknown]

NARRATIVE: CASE EVENT DATE: 20220215
